FAERS Safety Report 21757441 (Version 6)
Quarter: 2023Q1

REPORT INFORMATION
  Report Type: Report from Study
  Country: CL (occurrence: CL)
  Receive Date: 20221221
  Receipt Date: 20230218
  Transmission Date: 20230417
  Serious: Yes (Other)
  Sender: FDA-Public Use
  Company Number: CL-002147023-NVSC2022CL292180

PATIENT
  Age: 58 Year
  Sex: Female

DRUGS (4)
  1. KISQALI [Suspect]
     Active Substance: RIBOCICLIB
     Indication: Breast cancer stage IV
     Dosage: 600 MG, QD (FOR 21 CONSECUTIVE DAYS)
     Route: 048
     Dates: start: 202211
  2. KISQALI [Suspect]
     Active Substance: RIBOCICLIB
     Dosage: 600 MG, QD (EXP DATE JUL 2021)
     Route: 048
     Dates: start: 20221116
  3. KISQALI [Suspect]
     Active Substance: RIBOCICLIB
     Dosage: 600 MG, QD (EXP DATE JUL 2021)
     Route: 048
     Dates: start: 20230113
  4. FEMARA [Suspect]
     Active Substance: LETROZOLE
     Indication: Breast cancer
     Dosage: UNK
     Route: 065
     Dates: start: 20221109

REACTIONS (21)
  - Metastases to bone [Unknown]
  - Feeling abnormal [Unknown]
  - Gait disturbance [Unknown]
  - Head discomfort [Unknown]
  - Abdominal discomfort [Unknown]
  - Feeling hot [Unknown]
  - Anxiety [Unknown]
  - Fear [Unknown]
  - Stress [Unknown]
  - Discomfort [Unknown]
  - Viral infection [Unknown]
  - Memory impairment [Unknown]
  - Dehydration [Unknown]
  - White blood cell count decreased [Unknown]
  - Alopecia [Unknown]
  - Pyrexia [Unknown]
  - Malaise [Unknown]
  - Fatigue [Unknown]
  - Nausea [Unknown]
  - Diarrhoea [Unknown]
  - Illness [Unknown]

NARRATIVE: CASE EVENT DATE: 20221208
